FAERS Safety Report 6529485-1 (Version None)
Quarter: 2010Q1

REPORT INFORMATION
  Report Type: 
  Country: None (occurrence: None)
  Receive Date: 20100107
  Receipt Date: 20100104
  Transmission Date: 20100710
  Serious: Yes (Death)
  Sender: FDA-Public Use
  Company Number: PHEH2009US13266

PATIENT
  Sex: Female

DRUGS (3)
  1. RECLAST [Suspect]
     Indication: OSTEOPOROSIS
     Dosage: 5 MG, ONCE/SINGLE
     Route: 042
     Dates: start: 20080715, end: 20080715
  2. METOPROLOL [Concomitant]
     Dosage: 50 MG DAILY
     Route: 048
  3. MIRTAZAPINE [Concomitant]
     Dosage: 30 MG, BID
     Route: 048

REACTIONS (3)
  - COLON CANCER METASTATIC [None]
  - MALIGNANT NEOPLASM PROGRESSION [None]
  - ONCOLOGIC COMPLICATION [None]
